FAERS Safety Report 5411001-9 (Version None)
Quarter: 2007Q3

REPORT INFORMATION
  Report Type: 
  Country: None (occurrence: None)
  Receive Date: 20070713
  Receipt Date: 20070614
  Transmission Date: 20080115
  Serious: No
  Sender: FDA-Public Use
  Company Number: 2007SP002247

PATIENT
  Age: 85 Year
  Sex: Male
  Weight: 74.8435 kg

DRUGS (8)
  1. LUNESTA [Suspect]
     Indication: INSOMNIA
     Dosage: 3 MG;HS;ORAL 3 MG;HS;ORAL
     Route: 048
     Dates: start: 20070101, end: 20070301
  2. LUNESTA [Suspect]
     Indication: INSOMNIA
     Dosage: 3 MG;HS;ORAL 3 MG;HS;ORAL
     Route: 048
     Dates: start: 20070101
  3. ACETAMINOPHEN W/ PROPOXYPHENE HCL [Suspect]
     Indication: PAIN
     Dosage: PRN;ORAL
     Route: 048
  4. SIMVASTATIN [Concomitant]
  5. ZOLOFT [Concomitant]
  6. CELEBREX [Concomitant]
  7. TAMSULOSIN HCL [Concomitant]
  8. IBUPROFEN [Concomitant]

REACTIONS (1)
  - DRUG EFFECT DECREASED [None]
